FAERS Safety Report 10466589 (Version 1)
Quarter: 2014Q3

REPORT INFORMATION
  Report Type: Spontaneous
  Country: US (occurrence: None)
  Receive Date: 20140919
  Receipt Date: 20140919
  Transmission Date: 20150326
  Serious: Yes (Hospitalization)
  Sender: FDA-Public Use
  Company Number: None

PATIENT
  Age: 67 Year
  Sex: Female
  Weight: 82.8 kg

DRUGS (1)
  1. RHUMAB VEGF [Suspect]
     Active Substance: BEVACIZUMAB
     Dates: end: 20140815

REACTIONS (6)
  - Abdominal pain [None]
  - Urinary retention [None]
  - Constipation [None]
  - Perineal pain [None]
  - Neurogenic bladder [None]
  - Bladder disorder [None]

NARRATIVE: CASE EVENT DATE: 20140904
